FAERS Safety Report 15151227 (Version 2)
Quarter: 2018Q4

REPORT INFORMATION
  Report Type: Spontaneous
  Country: JP (occurrence: JP)
  Receive Date: 20180716
  Receipt Date: 20181015
  Transmission Date: 20190204
  Serious: Yes (Other)
  Sender: FDA-Public Use
  Company Number: JP-FERRINGPH-2018FE03614

PATIENT

DRUGS (2)
  1. DESMOPRESSIN [Suspect]
     Active Substance: DESMOPRESSIN
     Dosage: 240 ?G, 1 TIME DAILY BEFORE BED
     Route: 065
  2. DESMOPRESSIN [Suspect]
     Active Substance: DESMOPRESSIN
     Indication: DIABETES INSIPIDUS
     Dosage: 360 ?G, DAILY (120?G IN THE MORNING AND 240 ?G BEFORE BED)
     Route: 065

REACTIONS (4)
  - Hyponatraemia [Unknown]
  - Treatment noncompliance [Unknown]
  - Fall [Unknown]
  - Contusion [Unknown]
